FAERS Safety Report 8272605-1 (Version None)
Quarter: 2012Q2

REPORT INFORMATION
  Report Type: 
  Country: None (occurrence: None)
  Receive Date: 20120410
  Receipt Date: 20120330
  Transmission Date: 20120825
  Serious: Yes (Death)
  Sender: FDA-Public Use
  Company Number: JP-ELI_LILLY_AND_COMPANY-JP201203002055

PATIENT
  Sex: Female
  Weight: 33.4 kg

DRUGS (24)
  1. TRANSAMINE CAP [Concomitant]
     Indication: ABSCESS SWEAT GLAND
     Dosage: 1 DF, TID
     Route: 048
     Dates: start: 20120214, end: 20120229
  2. GOREI-SAN [Concomitant]
     Dosage: 2.5 G, TID
     Route: 048
     Dates: start: 20120222, end: 20120302
  3. LAMIVUDINE (EPIVIR HBV) [Concomitant]
     Indication: HEPATIC CIRRHOSIS
     Dosage: 1 DF, QD
     Route: 048
  4. RABEPRAZOLE SODIUM [Concomitant]
     Indication: GASTRITIS EROSIVE
     Dosage: 1 DF, QD
     Route: 048
  5. PROMACTA [Concomitant]
     Indication: GASTRITIS EROSIVE
     Dosage: 1 DF, BID
     Route: 048
  6. GASMOTIN [Concomitant]
     Indication: GASTRITIS EROSIVE
     Dosage: 1 DF, TID
     Route: 048
  7. ZOLPIDEM [Concomitant]
     Indication: INSOMNIA
     Dosage: 1 DF, QD
     Route: 048
     Dates: start: 20120302, end: 20120302
  8. HEPSERA [Concomitant]
     Indication: HEPATIC CIRRHOSIS
     Dosage: 1 DF, QD
     Route: 048
  9. AMINOLEBAN EN [Concomitant]
     Indication: HYPERAMMONAEMIA
     Dosage: 50 G, TID
     Route: 048
  10. LACTULOSE [Concomitant]
     Indication: HEPATIC ENCEPHALOPATHY
     Dosage: 20 ML, TID
     Route: 048
  11. LANTUS [Concomitant]
     Indication: TYPE 2 DIABETES MELLITUS
     Dosage: 10 IU, QD
     Route: 058
  12. CEFDINIR [Concomitant]
     Indication: ABSCESS SWEAT GLAND
     Dosage: 1 DF, TID
     Route: 048
     Dates: start: 20120214, end: 20120229
  13. LIVERES [Concomitant]
     Indication: HEPATIC CIRRHOSIS
     Dosage: 1 DF, QD
     Route: 042
     Dates: start: 20120217, end: 20120221
  14. NOVORAPID [Concomitant]
     Indication: TYPE 2 DIABETES MELLITUS
     Dosage: 8 IU, BID
     Route: 058
  15. JANUVIA [Concomitant]
     Indication: TYPE 2 DIABETES MELLITUS
     Dosage: 1 DF, QD
     Route: 048
     Dates: end: 20120302
  16. LYRICA [Concomitant]
     Indication: DIABETIC NEUROPATHY
     Dosage: 1 DF, QD
     Route: 048
     Dates: end: 20120302
  17. ALDACTONE [Concomitant]
     Dosage: 2 DF, QD
     Route: 048
  18. MITIGLINIDE CALCIUM [Concomitant]
     Indication: TYPE 2 DIABETES MELLITUS
     Dosage: 1 DF, TID
     Route: 048
     Dates: end: 20120302
  19. LOXONIN [Concomitant]
     Route: 062
  20. FUROSEMIDE [Concomitant]
     Dosage: 1 DF, QD
     Route: 042
     Dates: start: 20120301, end: 20120302
  21. ALBUMINAR [Concomitant]
     Indication: HYPOALBUMINAEMIA
     Dosage: 50 ML, QD
     Route: 042
     Dates: start: 20120301, end: 20120302
  22. FORTEO [Suspect]
     Indication: OSTEOPOROSIS
     Dosage: 20 UG, QD
     Route: 058
     Dates: start: 20120218, end: 20120303
  23. BISOLVON [Concomitant]
     Dosage: 1 DF, TID
     Route: 048
  24. HALOPERIDOL [Concomitant]
     Dosage: 1 DF, BID
     Route: 065
     Dates: start: 20120302, end: 20120302

REACTIONS (2)
  - RENAL FAILURE [None]
  - HEPATIC CIRRHOSIS [None]
